FAERS Safety Report 23098445 (Version 5)
Quarter: 2025Q4

REPORT INFORMATION
  Report Type: Report from Study
  Country: US (occurrence: US)
  Receive Date: 20231023
  Receipt Date: 20251204
  Transmission Date: 20260117
  Serious: Yes (Hospitalization, Other)
  Sender: PFIZER
  Company Number: US-PFIZER INC-202300335781

PATIENT
  Age: 70 Year
  Sex: Female

DRUGS (27)
  1. IBRANCE [Suspect]
     Active Substance: PALBOCICLIB
     Indication: Hormone receptor positive breast cancer
     Dosage: 125 MG, CYCLIC (DAILY FOR 21 DAYS THEN 7 DAYS OFF)
     Route: 048
  2. IBRANCE [Suspect]
     Active Substance: PALBOCICLIB
     Indication: Breast cancer female
     Dosage: 125 MG, CYCLIC (DAILY FOR 21 DAYS THEN 7 DAYS OFF)
     Route: 048
     Dates: end: 20231105
  3. IBRANCE [Suspect]
     Active Substance: PALBOCICLIB
     Dosage: 125 MG, TAKE 1 CAPSULE (125 MG TOTAL) DAILY FOR 21 DAYS FOLLOWED BY 7 DAYS OFF
     Route: 048
     Dates: start: 20250213
  4. IBRANCE [Suspect]
     Active Substance: PALBOCICLIB
     Dosage: TAKE 125 MG FOR 21 DAYS FOLLOWED BY 7 DAYS OFF
  5. IBRANCE [Suspect]
     Active Substance: PALBOCICLIB
     Dosage: 125MG TAKE 1 CAPSULE DAILY FOR 21 DAYS FOLLOWED BY 7 DAYS OFF
  6. CYCLOBENZAPRINE [Concomitant]
     Active Substance: CYCLOBENZAPRINE
     Dosage: 10 MG
  7. GABAPENTIN [Concomitant]
     Active Substance: GABAPENTIN
     Dosage: 800 MG
  8. ADVAIR HFA [Concomitant]
     Active Substance: FLUTICASONE PROPIONATE\SALMETEROL XINAFOATE
     Dosage: UNK(100-50 MC)/DISKU AEP
  9. ADVIL TABS [Concomitant]
     Dosage: 200 MG
  10. XANAX [Concomitant]
     Active Substance: ALPRAZOLAM
     Indication: Anxiety
     Dosage: TAKE 1 TABLET (0.25 MG TOTAL) BY MOUTH 2 (TWO) TIMES A DAY AS NEEDED
     Route: 048
  11. ASPIRIN [Concomitant]
     Active Substance: ASPIRIN
     Dosage: 81 MG
  12. DICLOFENAC SODIUM [Concomitant]
     Active Substance: DICLOFENAC SODIUM
     Dosage: 75 MG
  13. EXCEDRIN PM [Concomitant]
     Active Substance: ACETAMINOPHEN\DIPHENHYDRAMINE CITRATE
     Dosage: UNK(500-38MG)
  14. FULVESTRANT [Concomitant]
     Active Substance: FULVESTRANT
     Dosage: 50 MG/ML SOS (250MG/5ML)
  15. LISINOPRIL-HCT G.L. [Concomitant]
     Dosage: UNK (20-12.5M)
  16. METOPROLOL TARTRATE [Concomitant]
     Active Substance: METOPROLOL TARTRATE
     Dosage: 5 MG
  17. NEURONTIN [Concomitant]
     Active Substance: GABAPENTIN
     Dosage: TAKE 1 CAPSULE (300 MG TOTAL) NIGHTLY
     Route: 048
  18. ONDANSETRON [Concomitant]
     Active Substance: ONDANSETRON
     Dosage: 8 MG
  19. PROCHLORPERAZINE [Concomitant]
     Active Substance: PROCHLORPERAZINE
     Dosage: 10 MG
  20. SERTRALINE HYDROCHLORIDE [Concomitant]
     Active Substance: SERTRALINE HYDROCHLORIDE
     Dosage: 50 MG
  21. TRAMADOL HCL [Concomitant]
     Active Substance: TRAMADOL HYDROCHLORIDE
     Dosage: 50 MG
  22. XGEVA [Concomitant]
     Active Substance: DENOSUMAB
     Dosage: UNK
  23. ADVIL [Concomitant]
     Active Substance: IBUPROFEN
     Dosage: UNK
  24. ALPRAZOLAM [Concomitant]
     Active Substance: ALPRAZOLAM
     Dosage: UNK
  25. DICLOFENAC [Concomitant]
     Active Substance: DICLOFENAC
     Dosage: UNK
  26. LISINOPRIL H [Concomitant]
     Dosage: 20-12.5M
  27. METOPROLOL TARTRATE [Concomitant]
     Active Substance: METOPROLOL TARTRATE
     Dosage: UNK

REACTIONS (12)
  - Hip fracture [Unknown]
  - Gait inability [Unknown]
  - Pathological fracture [Not Recovered/Not Resolved]
  - Gingival disorder [Unknown]
  - Dental caries [Not Recovered/Not Resolved]
  - Bone disorder [Unknown]
  - Tooth infection [Unknown]
  - Paraesthesia [Not Recovered/Not Resolved]
  - Arthritis [Not Recovered/Not Resolved]
  - Blood urea increased [Unknown]
  - Blood creatinine increased [Unknown]
  - Laboratory test abnormal [Unknown]

NARRATIVE: CASE EVENT DATE: 20230101
